FAERS Safety Report 8454780-9 (Version None)
Quarter: 2012Q2

REPORT INFORMATION
  Report Type: 
  Country: None (occurrence: None)
  Receive Date: 20120621
  Receipt Date: 20120613
  Transmission Date: 20120825
  Serious: Yes (Hospitalization)
  Sender: FDA-Public Use
  Company Number: US-JNJFOC-20120520490

PATIENT
  Sex: Male
  Weight: 84.2 kg

DRUGS (6)
  1. MERCAPTOPURINE [Concomitant]
  2. OMEPRAZOLE [Concomitant]
  3. PREDNISONE TAB [Concomitant]
     Dosage: STOP DATE: 29-JUN-2012
  4. KEFLEX [Concomitant]
     Dosage: STOP DATE: 29-JUL-2012
  5. INFLIXIMAB, RECOMBINANT [Suspect]
     Indication: CROHN'S DISEASE
     Route: 042
     Dates: start: 20120316
  6. INFLIXIMAB, RECOMBINANT [Suspect]
     Route: 042
     Dates: start: 20120329

REACTIONS (1)
  - CROHN'S DISEASE [None]
